FAERS Safety Report 17907379 (Version 1)
Quarter: 2020Q2

REPORT INFORMATION
  Report Type: Spontaneous
  Country: US (occurrence: US)
  Receive Date: 20200617
  Receipt Date: 20200617
  Transmission Date: 20200714
  Serious: Yes (Hospitalization, Other)
  Sender: FDA-Public Use
  Company Number: US-SA-2020SA147029

PATIENT

DRUGS (8)
  1. ATORVASTATIN [Concomitant]
     Active Substance: ATORVASTATIN
     Dosage: 80 MG, QD
  2. ASPIRIN [ACETYLSALICYLIC ACID] [Concomitant]
     Active Substance: ASPIRIN
     Dosage: 81 MG, QD
  3. ASPIRIN [ACETYLSALICYLIC ACID] [Concomitant]
     Active Substance: ASPIRIN
     Dosage: 325 MG
     Route: 048
  4. METOPROLOL. [Concomitant]
     Active Substance: METOPROLOL
     Dosage: 25 MG, BID
  5. ENOXAPARIN SODIUM. [Suspect]
     Active Substance: ENOXAPARIN SODIUM
     Indication: THROMBOSIS PROPHYLAXIS
     Dosage: 40 MG, QD
     Route: 058
  6. HEPARIN [Suspect]
     Active Substance: HEPARIN SODIUM
     Indication: THROMBOSIS PROPHYLAXIS
     Dosage: 12 MG/KG, QH
     Route: 040
  7. NITROGLYCERIN. [Concomitant]
     Active Substance: NITROGLYCERIN
     Dosage: 1 INCH OF 2%
  8. TENECTEPLASE [Concomitant]
     Active Substance: TENECTEPLASE
     Dosage: 50 MG, 1X
     Route: 040

REACTIONS (12)
  - Fibrin D dimer increased [Recovered/Resolved]
  - Acute myocardial infarction [Recovered/Resolved]
  - Ventricular hypokinesia [Unknown]
  - Hyperhidrosis [Unknown]
  - Heparin-induced thrombocytopenia [Recovered/Resolved]
  - Troponin increased [Recovering/Resolving]
  - Ejection fraction decreased [Unknown]
  - Arterial thrombosis [Recovered/Resolved]
  - Chest pain [Unknown]
  - Deep vein thrombosis [Recovered/Resolved]
  - Dizziness [Unknown]
  - Venous thrombosis [Recovered/Resolved]
